FAERS Safety Report 13941505 (Version 1)
Quarter: 2017Q3

REPORT INFORMATION
  Report Type: Spontaneous
  Country: MX (occurrence: MX)
  Receive Date: 20170906
  Receipt Date: 20170906
  Transmission Date: 20171127
  Serious: Yes (Other)
  Sender: FDA-Public Use
  Company Number: MX-JNJFOC-20170826230

PATIENT

DRUGS (1)
  1. DARATUMUMAB [Suspect]
     Active Substance: DARATUMUMAB
     Indication: PRODUCT USED FOR UNKNOWN INDICATION
     Route: 042

REACTIONS (6)
  - Neuralgia [Unknown]
  - Jaundice [Unknown]
  - Metastases to liver [Unknown]
  - Transaminases increased [Unknown]
  - Back pain [Unknown]
  - Myalgia [Unknown]

NARRATIVE: CASE EVENT DATE: 201708
